FAERS Safety Report 21103085 (Version 2)
Quarter: 2022Q3

REPORT INFORMATION
  Report Type: Spontaneous
  Country: US (occurrence: None)
  Receive Date: 20220720
  Receipt Date: 20220803
  Transmission Date: 20221026
  Serious: Yes (Hospitalization, Other)
  Sender: FDA-Public Use
  Company Number: US-MDD US Operations-MDD202112-002506

PATIENT
  Age: 71 Year
  Sex: Male

DRUGS (4)
  1. APOKYN [Suspect]
     Active Substance: APOMORPHINE HYDROCHLORIDE
     Indication: Parkinson^s disease
     Route: 058
     Dates: start: 20171229
  2. APOKYN [Suspect]
     Active Substance: APOMORPHINE HYDROCHLORIDE
     Route: 058
     Dates: start: 202004
  3. APOKYN [Suspect]
     Active Substance: APOMORPHINE HYDROCHLORIDE
     Dosage: UP TO 0.6 ML
     Route: 058
     Dates: start: 20200404
  4. APOKYN [Suspect]
     Active Substance: APOMORPHINE HYDROCHLORIDE
     Dosage: UP TO 0.6 ML
     Route: 058
     Dates: start: 20210324

REACTIONS (5)
  - Surgery [Unknown]
  - Knee arthroplasty [Unknown]
  - Hospitalisation [Unknown]
  - Fall [Unknown]
  - Device breakage [Unknown]
